FAERS Safety Report 5141759-8 (Version None)
Quarter: 2006Q4

REPORT INFORMATION
  Report Type: 
  Country: None (occurrence: None)
  Receive Date: 20061027
  Receipt Date: 20061004
  Transmission Date: 20070319
  Serious: Yes (Hospitalization, Other)
  Sender: FDA-Public Use
  Company Number: CL200609003236

PATIENT
  Age: 36 Year
  Sex: Female
  Weight: 70 kg

DRUGS (7)
  1. CYMBALTA [Suspect]
     Indication: DEPRESSION
     Dosage: 30 MG, DAILY (1/D)
     Dates: start: 20060515, end: 20060525
  2. SLOW-K [Concomitant]
  3. ESPIRONOLACTONA (SPIRONOLACTONE) [Concomitant]
  4. MAGNESIUM ASCORBATE (MAGNESIUM ASCORBATE) TABLET [Concomitant]
  5. CARVEDILOL [Concomitant]
  6. OMEPRAZOL (OMEPRAZOLE) TABLET [Concomitant]
  7. TRAMADOL HYDROCHLORIDE (TRAMADOL HYDROCHLORIDE) DROPS [Concomitant]

REACTIONS (3)
  - BLOOD CREATINE PHOSPHOKINASE INCREASED [None]
  - TACHYCARDIA [None]
  - VENTRICULAR EXTRASYSTOLES [None]
